FAERS Safety Report 16253786 (Version 7)
Quarter: 2019Q4

REPORT INFORMATION
  Report Type: Spontaneous
  Country: DE (occurrence: DE)
  Receive Date: 20190430
  Receipt Date: 20191031
  Transmission Date: 20200122
  Serious: Yes (Death, Life-Threatening, Hospitalization, Other)
  Sender: FDA-Public Use
  Company Number: DE-AUROBINDO-AUR-APL-2019-001459

PATIENT
  Sex: Female
  Weight: 47 kg

DRUGS (11)
  1. KISQALI [Suspect]
     Active Substance: RIBOCICLIB
     Dosage: 400 MG, QD (21 DAYS INTAKE, THEN 7 DAY PAUSE)
     Route: 048
     Dates: start: 20190208, end: 20190220
  2. KISQALI [Suspect]
     Active Substance: RIBOCICLIB
     Dosage: 600 MILLIGRAM, ONCE A DAY(3 WEEKS, ONE WEEK PAUSE)
     Route: 048
     Dates: start: 20181211, end: 20190109
  3. KISQALI [Suspect]
     Active Substance: RIBOCICLIB
     Dosage: 600 MILLIGRAM, ONCE A DAY QD (21 DAYS INTAKE, THEN 7 DAY PAUSE)
     Route: 048
     Dates: start: 20181212, end: 20190109
  4. KISQALI [Suspect]
     Active Substance: RIBOCICLIB
     Dosage: 400 MILLIGRAM, ONCE A DAY
     Route: 048
     Dates: start: 20190308, end: 20190320
  5. KISQALI [Suspect]
     Active Substance: RIBOCICLIB
     Dosage: 200 MG, QD (21 DAYS INTAKE, THEN 7 DAY PAUSE)
     Route: 048
     Dates: start: 20190321, end: 20190321
  6. DENOSUMAB [Concomitant]
     Active Substance: DENOSUMAB
     Indication: PRODUCT USED FOR UNKNOWN INDICATION
     Dosage: UNK
     Route: 065
     Dates: start: 20181029, end: 20190327
  7. LETROZOLE. [Suspect]
     Active Substance: LETROZOLE
     Indication: BREAST CANCER METASTATIC
     Dosage: 2.5 MILLIGRAM, ONCE A DAY
     Route: 048
     Dates: start: 20181110, end: 201904
  8. KISQALI [Suspect]
     Active Substance: RIBOCICLIB
     Indication: BREAST CANCER METASTATIC
     Dosage: 600 MILLIGRAM, ONCE A DAY(3 WEEKS, ONE WEEK PAUSE)
     Route: 048
     Dates: start: 20181110, end: 20181207
  9. KISQALI [Suspect]
     Active Substance: RIBOCICLIB
     Dosage: 200 MILLIGRAM, ONCE A DAY
     Route: 048
     Dates: start: 20190321, end: 20190405
  10. KISQALI [Suspect]
     Active Substance: RIBOCICLIB
     Dosage: 400 MILLIGRAM, ONCE A DAY
     Route: 048
     Dates: start: 20190208, end: 20190222
  11. KISQALI [Suspect]
     Active Substance: RIBOCICLIB
     Dosage: 600 MG, QD (21 DAYS INTAKE, THEN 7 DAY PAUSE)
     Route: 048
     Dates: start: 20190110, end: 20190123

REACTIONS (18)
  - Fluid retention [Not Recovered/Not Resolved]
  - Cough [Fatal]
  - Metastases to pleura [Fatal]
  - Aspartate aminotransferase increased [Fatal]
  - Dyspnoea [Fatal]
  - Restlessness [Unknown]
  - Malignant neoplasm progression [Fatal]
  - Breast cancer metastatic [Fatal]
  - Pulmonary oedema [Fatal]
  - Pneumothorax [Recovered/Resolved]
  - Asthenia [Fatal]
  - Anxiety [Fatal]
  - Nausea [Fatal]
  - Neutrophil count decreased [Recovered/Resolved]
  - Pleural effusion [Fatal]
  - General physical health deterioration [Fatal]
  - Gamma-glutamyltransferase increased [Fatal]
  - Alanine aminotransferase increased [Unknown]

NARRATIVE: CASE EVENT DATE: 20181113
